FAERS Safety Report 10736183 (Version 1)
Quarter: 2015Q1

REPORT INFORMATION
  Report Type: Spontaneous
  Country: CN (occurrence: None)
  Receive Date: 20150121
  Receipt Date: 20150121
  Transmission Date: 20150721
  Serious: Yes (Hospitalization)
  Sender: FDA-Public Use
  Company Number: CN2015GSK002658

PATIENT
  Age: 40 Year
  Sex: Male

DRUGS (1)
  1. SEROXAT (PAROXETINE HYDROCHLORIDE) TABLET [Suspect]
     Active Substance: PAROXETINE HYDROCHLORIDE
     Indication: INSOMNIA
     Route: 048

REACTIONS (2)
  - Insomnia [None]
  - Off label use [None]

NARRATIVE: CASE EVENT DATE: 2014
